FAERS Safety Report 20225446 (Version 1)
Quarter: 2021Q4

REPORT INFORMATION
  Report Type: Spontaneous
  Country: US (occurrence: None)
  Receive Date: 20211224
  Receipt Date: 20211224
  Transmission Date: 20220303
  Serious: Yes (Other)
  Sender: FDA-Public Use
  Company Number: US-ROCHE-2982458

PATIENT
  Sex: Female

DRUGS (4)
  1. ACTEMRA [Suspect]
     Active Substance: TOCILIZUMAB
     Indication: Giant cell arteritis
     Route: 058
     Dates: start: 202110
  2. ACTEMRA [Suspect]
     Active Substance: TOCILIZUMAB
  3. ELIQUIS [Concomitant]
     Active Substance: APIXABAN
  4. IRON [Concomitant]
     Active Substance: IRON

REACTIONS (1)
  - Thrombosis [Unknown]
